FAERS Safety Report 5612550-0 (Version None)
Quarter: 2008Q1

REPORT INFORMATION
  Report Type: 
  Country: None (occurrence: None)
  Receive Date: 20080204
  Receipt Date: 20080131
  Transmission Date: 20080703
  Serious: Yes (Hospitalization)
  Sender: FDA-Public Use
  Company Number: FR-ASTRAZENECA-2008CG00143

PATIENT
  Age: 79 Year
  Sex: Male

DRUGS (10)
  1. XYLOCAINE [Suspect]
     Route: 058
     Dates: start: 20070422, end: 20070422
  2. CARBOCAINE [Suspect]
     Route: 058
     Dates: start: 20070422, end: 20070422
  3. DIPRIVAN [Suspect]
     Route: 042
     Dates: start: 20070422, end: 20070422
  4. PROFENID [Suspect]
     Route: 042
     Dates: start: 20070422, end: 20070423
  5. PERFALGAN [Suspect]
     Route: 042
     Dates: start: 20070421, end: 20070426
  6. AUGMENTIN '250' [Concomitant]
     Indication: LUNG DISORDER
     Dosage: 1 GRAM + 200 MG TWICE DAILY
     Route: 042
     Dates: start: 20070414, end: 20070423
  7. CIFLOX [Concomitant]
     Dates: start: 20070414
  8. OFLOCET [Concomitant]
  9. LASILIX [Concomitant]
     Indication: ISCHAEMIC CARDIOMYOPATHY
     Route: 042
     Dates: start: 20070414, end: 20070426
  10. FRAXIPARINE [Concomitant]
     Route: 058
     Dates: start: 20070420, end: 20070426

REACTIONS (5)
  - DERMATITIS BULLOUS [None]
  - PARANEOPLASTIC SYNDROME [None]
  - RASH MACULAR [None]
  - SERRATIA INFECTION [None]
  - SKIN EXFOLIATION [None]
